FAERS Safety Report 4428461-2 (Version None)
Quarter: 2004Q3

REPORT INFORMATION
  Report Type: 
  Country: None (occurrence: None)
  Receive Date: 20040813
  Receipt Date: 20040730
  Transmission Date: 20050211
  Serious: Yes (Hospitalization)
  Sender: FDA-Public Use
  Company Number: 2004AP03401

PATIENT
  Age: 66 Year
  Sex: Male
  Weight: 60.9 kg

DRUGS (2)
  1. MEROPENEM [Suspect]
     Indication: PROSTATITIS
     Dosage: 0.5 G BID IVD
     Dates: start: 20040524, end: 20040527
  2. PAZUCROSS [Concomitant]

REACTIONS (2)
  - BODY TEMPERATURE INCREASED [None]
  - HEPATOCELLULAR DAMAGE [None]
